FAERS Safety Report 8516810-5 (Version None)
Quarter: 2012Q3

REPORT INFORMATION
  Report Type: 
  Country: None (occurrence: None)
  Receive Date: 20120706
  Receipt Date: 20120622
  Transmission Date: 20120928
  Serious: Yes (Hospitalization, Other)
  Sender: FDA-Public Use
  Company Number: 20120163

PATIENT
  Age: 50 Year
  Sex: Male

DRUGS (7)
  1. TYLENOL [Concomitant]
  2. ZOFRAN [Concomitant]
  3. GRAVOL TAB [Concomitant]
  4. DIOVAN [Concomitant]
  5. NORVASC [Concomitant]
  6. VENOFER [Suspect]
     Indication: BLOOD IRON DECREASED
     Dosage: 200 MG EVERY 2 DAYS  INTRAVENOUS
     Route: 042
     Dates: start: 20120204, end: 20120223
  7. MAXERAN [Concomitant]

REACTIONS (1)
  - DEVICE OCCLUSION [None]
